FAERS Safety Report 15753489 (Version 1)
Quarter: 2018Q4

REPORT INFORMATION
  Report Type: Spontaneous
  Country: US (occurrence: US)
  Receive Date: 20181222
  Receipt Date: 20181222
  Transmission Date: 20190205
  Serious: No
  Sender: FDA-Public Use
  Company Number: US-MALLINCKRODT-T201803184

PATIENT
  Age: 63 Year
  Sex: Male

DRUGS (5)
  1. FENTANYL TRANSDERMAL SYSTEM [Suspect]
     Active Substance: FENTANYL
     Indication: BACK PAIN
     Dosage: 50 MCG/H EVERY 3 DAYS
     Route: 062
     Dates: start: 20180714
  2. OXYCODONE [Suspect]
     Active Substance: OXYCODONE
     Indication: MUSCULOSKELETAL PAIN
  3. FENTANYL TRANSDERMAL SYSTEM [Suspect]
     Active Substance: FENTANYL
     Indication: MUSCULOSKELETAL PAIN
  4. LORAZEPAM. [Concomitant]
     Active Substance: LORAZEPAM
     Indication: ANXIETY
     Dosage: 1 MG, BID [6 MG PER DAY]
     Route: 065
  5. OXYCODONE [Suspect]
     Active Substance: OXYCODONE
     Indication: BACK PAIN
     Dosage: UNK
     Route: 048

REACTIONS (10)
  - Chest discomfort [Unknown]
  - Anxiety [Unknown]
  - Drug ineffective [Unknown]
  - Panic disorder [Unknown]
  - Lacrimation increased [Unknown]
  - Dizziness [Unknown]
  - Agoraphobia [Unknown]
  - Dyspnoea [Unknown]
  - Muscle twitching [Unknown]
  - Confusional state [Unknown]

NARRATIVE: CASE EVENT DATE: 201807
